FAERS Safety Report 10029392 (Version 2)
Quarter: 2014Q2

REPORT INFORMATION
  Report Type: Report from Study
  Country: CA (occurrence: CA)
  Receive Date: 20140322
  Receipt Date: 20140403
  Transmission Date: 20141212
  Serious: Yes (Death)
  Sender: FDA-Public Use
  Company Number: PHHY2014CA034586

PATIENT
  Sex: Male

DRUGS (1)
  1. ACLASTA [Suspect]
     Indication: OSTEOPOROSIS
     Dosage: UNK UKN, ONCE PER YEAR
     Route: 042
     Dates: start: 20130617

REACTIONS (1)
  - Death [Fatal]
